FAERS Safety Report 23280376 (Version 4)
Quarter: 2025Q1

REPORT INFORMATION
  Report Type: Report from Study
  Country: DE (occurrence: DE)
  Receive Date: 20231210
  Receipt Date: 20250217
  Transmission Date: 20250409
  Serious: Yes (Hospitalization, Other)
  Sender: ROCHE
  Company Number: DE-ROCHE-3082013

PATIENT
  Age: 37 Year
  Sex: Female

DRUGS (9)
  1. OCREVUS [Suspect]
     Active Substance: OCRELIZUMAB
     Indication: Relapsing-remitting multiple sclerosis
     Dosage: IN 196 DAYS
     Route: 040
     Dates: start: 20210908
  2. OCREVUS [Suspect]
     Active Substance: OCRELIZUMAB
     Route: 040
  3. ATOMOXETINE [Suspect]
     Active Substance: ATOMOXETINE
     Indication: Product used for unknown indication
     Dosage: FREQUENCY TEXT:1-0-0
     Route: 065
  4. BUPROPION HYDROCHLORIDE [Concomitant]
     Active Substance: BUPROPION HYDROCHLORIDE
  5. CETIRIZINE [Concomitant]
     Active Substance: CETIRIZINE HYDROCHLORIDE
  6. ACETAMINOPHEN [Concomitant]
     Active Substance: ACETAMINOPHEN
  7. VITAMIN D3 [Concomitant]
     Active Substance: CHOLECALCIFEROL
  8. ESOMEPRAZOLE [Concomitant]
     Active Substance: ESOMEPRAZOLE
  9. PREGABALIN [Concomitant]
     Active Substance: PREGABALIN

REACTIONS (20)
  - Fatigue [Not Recovered/Not Resolved]
  - Headache [Recovered/Resolved]
  - Oropharyngeal pain [Recovered/Resolved]
  - Dyspnoea [Recovered/Resolved]
  - Dizziness [Recovering/Resolving]
  - Leukopenia [Recovered/Resolved]
  - Cardiovascular disorder [Unknown]
  - Agoraphobia [Recovered/Resolved]
  - Arthralgia [Recovered/Resolved]
  - Gastritis [Recovering/Resolving]
  - Gastrooesophageal sphincter insufficiency [Recovering/Resolving]
  - Vitamin D deficiency [Not Recovered/Not Resolved]
  - Perioral dermatitis [Recovered/Resolved]
  - Fatigue [Recovered/Resolved]
  - Constipation [Recovering/Resolving]
  - Pneumonia [Recovered/Resolved]
  - Alopecia [Recovered/Resolved]
  - Uterine leiomyoma [Recovered/Resolved]
  - Cough [Recovered/Resolved]
  - Vaginal infection [Recovered/Resolved]

NARRATIVE: CASE EVENT DATE: 20210908
